FAERS Safety Report 7677382-0 (Version None)
Quarter: 2011Q3

REPORT INFORMATION
  Report Type: 
  Country: None (occurrence: None)
  Receive Date: 20110811
  Receipt Date: 20110808
  Transmission Date: 20111222
  Serious: Yes (Hospitalization)
  Sender: FDA-Public Use
  Company Number: FR-SANOFI-AVENTIS-2011SA025510

PATIENT
  Age: 60 Year
  Sex: Male

DRUGS (8)
  1. SOLU-MEDROL [Concomitant]
  2. HYDREA [Concomitant]
  3. PLAVIX [Suspect]
     Route: 048
  4. DESFERAL [Suspect]
     Route: 065
     Dates: start: 20090101, end: 20110227
  5. PHENOXYMETHYL PENICILLIN [Concomitant]
  6. PAROXETINE HCL [Concomitant]
  7. SOTALOL HCL [Concomitant]
  8. ACTONEL [Concomitant]

REACTIONS (2)
  - OPTIC NEURITIS [None]
  - PARAESTHESIA [None]
